FAERS Safety Report 5752174-8 (Version None)
Quarter: 2008Q2

REPORT INFORMATION
  Report Type: 
  Country: None (occurrence: None)
  Receive Date: 20080527
  Receipt Date: 20080509
  Transmission Date: 20081010
  Serious: Yes (Hospitalization)
  Sender: FDA-Public Use
  Company Number: 2008US001118

PATIENT
  Age: 66 Year
  Sex: Female
  Weight: 72.6 kg

DRUGS (6)
  1. AMEVIVE [Suspect]
     Indication: PSORIASIS
     Dosage: 15 MG, WEEKLY, INTRAMUSCULAR
     Route: 030
     Dates: start: 20051007
  2. INSULIN NOVOLIN 70/30 (INSULIN HUMAN SEMISYNTHETIC, INSULIN ISOPHANE H [Concomitant]
  3. IRON (IRON) [Concomitant]
  4. CALCITROL (ERGOCALCIFEROL, RETINOL) [Concomitant]
  5. NORVASC [Concomitant]
  6. PROCRIT [Concomitant]

REACTIONS (19)
  - BLOOD CREATINE INCREASED [None]
  - BLOOD GASES ABNORMAL [None]
  - BLOOD GLUCOSE DECREASED [None]
  - BLOOD PRESSURE SYSTOLIC INCREASED [None]
  - BLOOD UREA INCREASED [None]
  - CONFUSIONAL STATE [None]
  - CULTURE URINE POSITIVE [None]
  - FOOT FRACTURE [None]
  - HAEMATOCRIT DECREASED [None]
  - HAEMATURIA [None]
  - HAEMOGLOBIN DECREASED [None]
  - INTERVERTEBRAL DISC PROTRUSION [None]
  - LOSS OF CONSCIOUSNESS [None]
  - LUNG INJURY [None]
  - PERICARDIAL EFFUSION [None]
  - RIB FRACTURE [None]
  - ROAD TRAFFIC ACCIDENT [None]
  - URINE ANALYSIS ABNORMAL [None]
  - WHITE BLOOD CELL COUNT INCREASED [None]
